FAERS Safety Report 7376114-3 (Version None)
Quarter: 2011Q1

REPORT INFORMATION
  Report Type: 
  Country: None (occurrence: None)
  Receive Date: 20110325
  Receipt Date: 20110314
  Transmission Date: 20110831
  Serious: Yes (Other)
  Sender: FDA-Public Use
  Company Number: PHHY2011JP21518

PATIENT

DRUGS (10)
  1. CYTARABINE [Suspect]
     Indication: IMMUNOSUPPRESSION
  2. CYTARABINE [Suspect]
  3. ETOPOSIDE [Suspect]
     Indication: IMMUNOSUPPRESSION
     Route: 042
  4. MITOXANTRONE [Suspect]
     Indication: IMMUNOSUPPRESSION
  5. FLUDARABINE [Suspect]
     Indication: IMMUNOSUPPRESSION
  6. IFOSFAMIDE [Suspect]
     Indication: IMMUNOSUPPRESSION
  7. DOXORUBICIN [Suspect]
     Indication: IMMUNOSUPPRESSION
  8. VINCRISTINE [Suspect]
     Indication: IMMUNOSUPPRESSION
  9. PREDNISOLONE [Suspect]
     Indication: IMMUNOSUPPRESSION
  10. CYCLOPHOSPHAMIDE [Suspect]
     Indication: IMMUNOSUPPRESSION

REACTIONS (1)
  - HEPATITIS B [None]
